FAERS Safety Report 16946615 (Version 2)
Quarter: 2019Q4

REPORT INFORMATION
  Report Type: Spontaneous
  Country: DE (occurrence: DE)
  Receive Date: 20191022
  Receipt Date: 20191023
  Transmission Date: 20200122
  Serious: Yes (Other)
  Sender: FDA-Public Use
  Company Number: DE-009507513-1910DEU011522

PATIENT
  Sex: Male

DRUGS (1)
  1. KEYTRUDA [Suspect]
     Active Substance: PEMBROLIZUMAB
     Indication: NON-SMALL CELL LUNG CANCER
     Dosage: EVERY 6 WEEKS
     Dates: start: 201810

REACTIONS (3)
  - Inappropriate schedule of product administration [Unknown]
  - Systemic inflammatory response syndrome [Recovered/Resolved]
  - Pain [Unknown]
